FAERS Safety Report 17444881 (Version 3)
Quarter: 2022Q4

REPORT INFORMATION
  Report Type: Spontaneous
  Country: DE (occurrence: DE)
  Receive Date: 20200221
  Receipt Date: 20221027
  Transmission Date: 20230113
  Serious: Yes (Hospitalization)
  Sender: FDA-Public Use
  Company Number: DE-ADRED-04122-01

PATIENT
  Age: 73 Year
  Sex: Female
  Weight: 73 kg

DRUGS (4)
  1. HYDROCHLOROTHIAZIDE [Suspect]
     Active Substance: HYDROCHLOROTHIAZIDE
     Indication: Product used for unknown indication
     Dosage: 12.5 MILLIGRAM DAILY; 12.5 MG, 1-0-0-0
     Route: 048
  2. CANDESARTAN [Suspect]
     Active Substance: CANDESARTAN
     Indication: Product used for unknown indication
     Dosage: 8 MILLIGRAM DAILY; 8 MG, 1-0-0-0
     Route: 048
  3. BEVACIZUMAB [Suspect]
     Active Substance: BEVACIZUMAB
     Indication: Product used for unknown indication
     Dosage: ACCORDING TO SCHEME, LAST ON 06082019
     Route: 042
  4. PREGABALIN [Concomitant]
     Active Substance: PREGABALIN
     Indication: Product used for unknown indication
     Dosage: 75 MILLIGRAM DAILY; 75 MG, 0-0-0-1
     Route: 048

REACTIONS (3)
  - General physical health deterioration [Unknown]
  - Psoas abscess [Unknown]
  - Inflammation [Unknown]
